FAERS Safety Report 4647900-5 (Version None)
Quarter: 2005Q2

REPORT INFORMATION
  Report Type: 
  Country: None (occurrence: None)
  Receive Date: 20050428
  Receipt Date: 20050330
  Transmission Date: 20051028
  Serious: Yes (Other)
  Sender: FDA-Public Use
  Company Number: PHBS2005JP04451

PATIENT
  Age: 44 Year
  Sex: Female

DRUGS (5)
  1. TEGRETOL [Suspect]
     Indication: TEMPORAL LOBE EPILEPSY
     Route: 048
  2. TEGRETOL [Suspect]
     Dosage: 1000
     Route: 048
  3. TEGRETOL [Suspect]
     Dosage: 800 MG/DAY
     Route: 048
  4. QUETIAPINE [Suspect]
     Indication: TEMPORAL LOBE EPILEPSY
     Dosage: 25 MG/DAY
     Route: 048
  5. QUETIAPINE [Suspect]
     Dosage: 50 MG/DAY
     Route: 048

REACTIONS (5)
  - ANTICONVULSANT DRUG LEVEL INCREASED [None]
  - COMPLEX PARTIAL SEIZURES [None]
  - CONVULSION [None]
  - DRUG INTERACTION [None]
  - DRUG LEVEL DECREASED [None]
